FAERS Safety Report 8207020-X (Version None)
Quarter: 2012Q1

REPORT INFORMATION
  Report Type: 
  Country: None (occurrence: None)
  Receive Date: 20120314
  Receipt Date: 20120302
  Transmission Date: 20120608
  Serious: Yes (Hospitalization)
  Sender: FDA-Public Use
  Company Number: US-RANBAXY-2012US-53676

PATIENT
  Age: 60 Year
  Sex: Female

DRUGS (4)
  1. CIPROFLOXACIN [Suspect]
     Indication: PRODUCT USED FOR UNKNOWN INDICATION
     Dosage: 400 MG, QD
     Route: 042
  2. CEFOXITIN [Suspect]
     Dosage: 1 G, BID
     Route: 042
  3. CEFOXITIN [Suspect]
     Indication: DIVERTICULUM
     Dosage: 2G
     Route: 042
  4. CINACALCET HYDROCHLORIDE [Concomitant]
     Indication: PRODUCT USED FOR UNKNOWN INDICATION
     Route: 065

REACTIONS (4)
  - CATATONIA [None]
  - TACHYCARDIA [None]
  - NEUROTOXICITY [None]
  - CONDITION AGGRAVATED [None]
